FAERS Safety Report 9525327 (Version 1)
Quarter: 2013Q3

REPORT INFORMATION
  Report Type: Spontaneous
  Country: FR (occurrence: FR)
  Receive Date: 20130916
  Receipt Date: 20130916
  Transmission Date: 20140515
  Serious: Yes (Hospitalization)
  Sender: FDA-Public Use
  Company Number: FR-JNJFOC-20130903313

PATIENT
  Age: 19 Year
  Sex: Male

DRUGS (2)
  1. XEPLION [Suspect]
     Indication: SCHIZOPHRENIA, PARANOID TYPE
     Dosage: SECOND INJECTION
     Route: 030
     Dates: start: 20130702
  2. XEPLION [Suspect]
     Indication: SCHIZOPHRENIA, PARANOID TYPE
     Route: 030

REACTIONS (4)
  - Dystonia [Recovered/Resolved]
  - Psychomotor skills impaired [Recovered/Resolved]
  - Dysphagia [Recovered/Resolved]
  - Extrapyramidal disorder [Unknown]
